FAERS Safety Report 13474164 (Version 1)
Quarter: 2017Q2

REPORT INFORMATION
  Report Type: Spontaneous
  Country: US (occurrence: US)
  Receive Date: 20170424
  Receipt Date: 20170424
  Transmission Date: 20170830
  Serious: Yes (Other)
  Sender: FDA-Public Use
  Company Number: US-SA-2016SA221908

PATIENT
  Sex: Female

DRUGS (2)
  1. LOVENOX [Suspect]
     Active Substance: ENOXAPARIN SODIUM
     Route: 051
  2. LOVENOX [Suspect]
     Active Substance: ENOXAPARIN SODIUM
     Route: 051

REACTIONS (4)
  - Haematoma [Unknown]
  - Haemorrhage [Unknown]
  - Weight decreased [Unknown]
  - Contusion [Unknown]
